FAERS Safety Report 8298086-X (Version None)
Quarter: 2012Q2

REPORT INFORMATION
  Report Type: 
  Country: None (occurrence: None)
  Receive Date: 20120419
  Receipt Date: 20120410
  Transmission Date: 20120825
  Serious: Yes (Other)
  Sender: FDA-Public Use
  Company Number: DE-US-EMD SERONO, INC.-7125695

PATIENT
  Sex: Female

DRUGS (4)
  1. IBUPROFEN TABLETS [Concomitant]
     Route: 048
     Dates: start: 20110201, end: 20120101
  2. REBIF [Suspect]
     Indication: MULTIPLE SCLEROSIS
     Route: 058
     Dates: start: 20070505, end: 20110101
  3. REBIF [Suspect]
     Dates: start: 20110201, end: 20120101
  4. IBUPROFEN TABLETS [Concomitant]
     Indication: PROPHYLAXIS
     Route: 048
     Dates: start: 20070505, end: 20110101

REACTIONS (2)
  - MATERNAL EXPOSURE DURING PREGNANCY [None]
  - ABORTION MISSED [None]
